FAERS Safety Report 20015504 (Version 1)
Quarter: 2021Q4

REPORT INFORMATION
  Report Type: Spontaneous
  Country: US (occurrence: None)
  Receive Date: 20211029
  Receipt Date: 20211029
  Transmission Date: 20220303
  Serious: Yes (Death)
  Sender: FDA-Public Use
  Company Number: None

PATIENT
  Age: 6 Year
  Sex: Female
  Weight: 23.4 kg

DRUGS (5)
  1. DEXAMETHASONE [Suspect]
     Active Substance: DEXAMETHASONE
     Indication: Product used for unknown indication
     Dates: end: 20211017
  2. LEUCOVORIN CALCIUM [Suspect]
     Active Substance: LEUCOVORIN CALCIUM
     Indication: Product used for unknown indication
     Dates: end: 20211014
  3. MERCAPTOPURINE [Suspect]
     Active Substance: MERCAPTOPURINE
     Indication: Product used for unknown indication
     Dates: end: 20211024
  4. METHOTREXATE [Suspect]
     Active Substance: METHOTREXATE
     Indication: Product used for unknown indication
     Dates: end: 20211013
  5. VINCRISTINE SULFATE [Suspect]
     Active Substance: VINCRISTINE SULFATE
     Indication: Product used for unknown indication
     Dates: end: 20211013

REACTIONS (15)
  - Pseudomonal sepsis [None]
  - Multiple organ dysfunction syndrome [None]
  - Respiratory failure [None]
  - Otitis media acute [None]
  - Diarrhoea [None]
  - Septic shock [None]
  - Cardiac arrest [None]
  - Acute kidney injury [None]
  - Hepatic failure [None]
  - Pancytopenia [None]
  - Culture positive [None]
  - Culture throat [None]
  - Respiratory syncytial virus infection [None]
  - Hypoglycaemia [None]
  - Metabolic acidosis [None]

NARRATIVE: CASE EVENT DATE: 20211025
